FAERS Safety Report 13272588 (Version 2)
Quarter: 2017Q3

REPORT INFORMATION
  Report Type: Spontaneous
  Country: US (occurrence: US)
  Receive Date: 20170227
  Receipt Date: 20170804
  Transmission Date: 20171127
  Serious: No
  Sender: FDA-Public Use
  Company Number: US-PFIZER INC-2017074982

PATIENT
  Age: 10 Year
  Sex: Male
  Weight: 28 kg

DRUGS (2)
  1. GENOTROPIN [Suspect]
     Active Substance: SOMATROPIN
     Indication: HYPOPITUITARISM
     Dosage: 2.4 MG, DAILY (2.4 MG/DAY 7 DAYS/WK)
     Route: 058
     Dates: start: 20170706
  2. GENOTROPIN [Suspect]
     Active Substance: SOMATROPIN
     Indication: GROWTH HORMONE DEFICIENCY
     Dosage: 1.6MG ALTERNATING WITH 1.8MG DAILY

REACTIONS (2)
  - Injection site swelling [Unknown]
  - Product use issue [Unknown]
